FAERS Safety Report 8099813-7 (Version None)
Quarter: 2012Q1

REPORT INFORMATION
  Report Type: 
  Country: None (occurrence: None)
  Receive Date: 20120129
  Receipt Date: 20111005
  Transmission Date: 20120608
  Serious: No
  Sender: FDA-Public Use
  Company Number: US-ABBOTT-11P-163-0862576-00

PATIENT
  Sex: Male
  Weight: 54.026 kg

DRUGS (11)
  1. CLONIDINE [Concomitant]
     Indication: HYPERTENSION
  2. HUMIRA [Suspect]
     Indication: RHEUMATOID ARTHRITIS
     Dosage: EVERY 7 TO 10 DAYS
     Dates: start: 20101201, end: 20110201
  3. HUMIRA [Suspect]
     Indication: RHEUMATOID ARTHRITIS
     Dates: start: 20070101, end: 20101201
  4. HUMIRA [Suspect]
     Dosage: ONCE
     Dates: start: 20110801, end: 20110801
  5. ENALAPRIL [Concomitant]
     Indication: CARDIAC FAILURE CONGESTIVE
  6. DIOVAN HCT [Concomitant]
     Indication: HYPERTENSION
  7. COREG [Concomitant]
     Indication: CARDIAC FAILURE CONGESTIVE
  8. AMIODARONE HCL [Concomitant]
     Indication: ATRIAL FIBRILLATION
  9. COUMADIN [Concomitant]
     Indication: CARDIAC FAILURE CONGESTIVE
  10. COUMADIN [Concomitant]
     Indication: ATRIAL FIBRILLATION
  11. SIMVASTATIN [Concomitant]
     Indication: BLOOD CHOLESTEROL INCREASED

REACTIONS (1)
  - RHEUMATOID ARTHRITIS [None]
